FAERS Safety Report 9790526 (Version 1)
Quarter: 2013Q4

REPORT INFORMATION
  Report Type: Spontaneous
  Country: US (occurrence: US)
  Receive Date: 20131231
  Receipt Date: 20131231
  Transmission Date: 20140711
  Serious: Yes (Death, Other)
  Sender: FDA-Public Use
  Company Number: US-PFIZER INC-2013371123

PATIENT
  Age: 74 Year
  Sex: Female
  Weight: 126.98 kg

DRUGS (1)
  1. REVATIO [Suspect]
     Indication: PULMONARY HYPERTENSION
     Dosage: UNK, 3X/DAY
     Route: 048
     Dates: end: 201311

REACTIONS (1)
  - Death [Fatal]
